FAERS Safety Report 23623021 (Version 1)
Quarter: 2024Q1

REPORT INFORMATION
  Report Type: Spontaneous
  Country: US (occurrence: US)
  Receive Date: 20240312
  Receipt Date: 20240312
  Transmission Date: 20240410
  Serious: Yes (Hospitalization, Other)
  Sender: FDA-Public Use
  Company Number: US-PFIZER INC-PV202400033551

PATIENT
  Age: 41 Year
  Sex: Female

DRUGS (1)
  1. SIROLIMUS [Suspect]
     Active Substance: SIROLIMUS
     Indication: Heart transplant rejection
     Dosage: UNK

REACTIONS (2)
  - Hypersensitivity pneumonitis [Recovered/Resolved]
  - Off label use [Unknown]
